FAERS Safety Report 6808336-1 (Version None)
Quarter: 2010Q2

REPORT INFORMATION
  Report Type: 
  Country: None (occurrence: None)
  Receive Date: 20100629
  Receipt Date: 20090519
  Transmission Date: 20101027
  Serious: No
  Sender: FDA-Public Use
  Company Number: US-PFIZER INC-2009215157

PATIENT
  Age: 55 Year
  Sex: Female

DRUGS (5)
  1. VIAGRA [Suspect]
     Dosage: UNK
  2. ARAVA [Suspect]
     Indication: CREST SYNDROME
     Dosage: UNK
     Dates: start: 20090301
  3. ARAVA [Suspect]
     Indication: SJOGREN'S SYNDROME
  4. ARAVA [Suspect]
     Indication: IDIOPATHIC PULMONARY FIBROSIS
  5. PLAQUENIL [Concomitant]
     Dosage: UNK
     Dates: end: 20080101

REACTIONS (1)
  - VISUAL IMPAIRMENT [None]
